FAERS Safety Report 19077017 (Version 1)
Quarter: 2021Q1

REPORT INFORMATION
  Report Type: Spontaneous
  Country: US (occurrence: US)
  Receive Date: 20210331
  Receipt Date: 20210331
  Transmission Date: 20210420
  Serious: No
  Sender: FDA-Public Use
  Company Number: US-HIKMA PHARMACEUTICALS USA INC.-US-H14001-20-03133

PATIENT
  Sex: Male

DRUGS (2)
  1. BUTORPHANOL TARTARATE [Suspect]
     Active Substance: BUTORPHANOL
     Indication: NEURALGIA
  2. BUTORPHANOL TARTARATE [Suspect]
     Active Substance: BUTORPHANOL
     Indication: INTERVERTEBRAL DISC PROTRUSION
     Dosage: ONE SPRAY

REACTIONS (1)
  - Product dose omission issue [Unknown]
